FAERS Safety Report 5921069-9 (Version None)
Quarter: 2008Q4

REPORT INFORMATION
  Report Type: 
  Country: None (occurrence: None)
  Receive Date: 20081016
  Receipt Date: 20081009
  Transmission Date: 20090506
  Serious: Yes (Hospitalization, Other)
  Sender: FDA-Public Use
  Company Number: DE-WYE-G02249008

PATIENT
  Sex: Male
  Weight: 76 kg

DRUGS (6)
  1. TORISEL [Suspect]
     Indication: RENAL CANCER METASTATIC
     Route: 042
     Dates: start: 20080417, end: 20080925
  2. BEZAFIBRATE [Suspect]
     Indication: LIPID METABOLISM DISORDER
     Dosage: UNKNOWN
     Route: 048
     Dates: end: 20080101
  3. BEZAFIBRATE [Suspect]
     Dosage: UNKNOWN
     Route: 048
     Dates: start: 20080101, end: 20080901
  4. BEZAFIBRATE [Suspect]
     Dosage: UNKNOWN
     Route: 048
     Dates: start: 20080901
  5. FLUVASTATIN [Concomitant]
     Indication: LIPID METABOLISM DISORDER
     Dosage: UNKNOWN
     Route: 048
     Dates: start: 20080101
  6. SIMVASTATIN [Concomitant]
     Indication: LIPID METABOLISM DISORDER
     Dosage: UNKNOWN
     Route: 048
     Dates: end: 20080101

REACTIONS (6)
  - BLOOD CREATININE INCREASED [None]
  - BLOOD TRIGLYCERIDES INCREASED [None]
  - BLOOD UREA INCREASED [None]
  - CONCOMITANT DISEASE AGGRAVATED [None]
  - PNEUMONIA [None]
  - THROMBOSIS [None]
